FAERS Safety Report 20345515 (Version 1)
Quarter: 2022Q1

REPORT INFORMATION
  Report Type: Spontaneous
  Country: US (occurrence: US)
  Receive Date: 20220118
  Receipt Date: 20220118
  Transmission Date: 20220423
  Serious: Yes (Other)
  Sender: FDA-Public Use
  Company Number: US-JAZZ-2022-US-000104

PATIENT
  Sex: Male
  Weight: 77.11 kg

DRUGS (1)
  1. XYWAV [Suspect]
     Active Substance: CALCIUM OXYBATE\MAGNESIUM OXYBATE\POTASSIUM OXYBATE\SODIUM OXYBATE
     Indication: Narcolepsy
     Dosage: 4.5 GRAM, BID, NIGHTLY
     Route: 048

REACTIONS (6)
  - Oesophageal haemorrhage [Unknown]
  - Decreased appetite [Unknown]
  - Hypertension [Unknown]
  - Anxiety [Unknown]
  - Depression [Unknown]
  - Oesophagitis [Unknown]
